FAERS Safety Report 15644323 (Version 2)
Quarter: 2018Q4

REPORT INFORMATION
  Report Type: Spontaneous
  Country: IT (occurrence: IT)
  Receive Date: 20181121
  Receipt Date: 20181124
  Transmission Date: 20190205
  Serious: Yes (Hospitalization)
  Sender: FDA-Public Use
  Company Number: IT-ANIPHARMA-2018-IT-000133

PATIENT
  Age: 83 Year
  Sex: Female

DRUGS (8)
  1. CANDESARTAN CILEXETIL AND HYDROCHLOROTHIAZIDE [Suspect]
     Active Substance: CANDESARTAN CILEXETIL\HYDROCHLOROTHIAZIDE
     Indication: PRODUCT USED FOR UNKNOWN INDICATION
     Route: 048
  2. ELIQUIS [Concomitant]
     Active Substance: APIXABAN
     Dosage: 5 MG UNK
     Route: 048
  3. LASIX [Suspect]
     Active Substance: FUROSEMIDE
     Dosage: 25 MG TWICE DAILY
     Route: 048
  4. KANRENOL [Concomitant]
     Active Substance: CANRENOATE POTASSIUM
     Route: 065
  5. EUTIROX [Concomitant]
     Active Substance: LEVOTHYROXINE SODIUM
     Dosage: 75 MG UNK
     Route: 065
  6. LANOXIN [Suspect]
     Active Substance: DIGOXIN
     Dosage: 0.125 MG
     Route: 048
  7. LERCADIP [Concomitant]
     Active Substance: LERCANIDIPINE HYDROCHLORIDE
     Route: 065
  8. MIRTAZAPINE. [Concomitant]
     Active Substance: MIRTAZAPINE
     Route: 065

REACTIONS (3)
  - Toxicity to various agents [Recovering/Resolving]
  - Loss of consciousness [Recovering/Resolving]
  - Drug interaction [Recovering/Resolving]

NARRATIVE: CASE EVENT DATE: 20180815
